FAERS Safety Report 8016394-4 (Version None)
Quarter: 2011Q4

REPORT INFORMATION
  Report Type: 
  Country: None (occurrence: None)
  Receive Date: 20111230
  Receipt Date: 20111227
  Transmission Date: 20120403
  Serious: Yes (Hospitalization, Disabling, Other)
  Sender: FDA-Public Use
  Company Number: FR-SANOFI-AVENTIS-2011SA014489

PATIENT
  Age: 83 Year
  Sex: Male
  Weight: 73 kg

DRUGS (5)
  1. ENALAPRIL MALEATE AND HYDROCHLOROTHIAZIDE [Concomitant]
     Dosage: DOSE:1 UNIT(S)
     Route: 048
  2. PREVISCAN [Concomitant]
     Indication: ATRIAL FIBRILLATION
     Dosage: DOSE:1 UNIT(S)
     Route: 048
     Dates: start: 20100801
  3. MULTAQ [Suspect]
     Indication: ATRIAL FIBRILLATION
     Route: 048
     Dates: start: 20101215, end: 20110130
  4. VASTAREL ^BIOPHARMA^ [Concomitant]
     Indication: DIZZINESS
     Route: 048
  5. AMIODARONE HCL [Suspect]
     Indication: ATRIAL FIBRILLATION
     Route: 048
     Dates: start: 20101022, end: 20101207

REACTIONS (3)
  - DYSPNOEA [None]
  - COUGH [None]
  - INTERSTITIAL LUNG DISEASE [None]
